FAERS Safety Report 4398865-5 (Version None)
Quarter: 2004Q3

REPORT INFORMATION
  Report Type: 
  Country: None (occurrence: None)
  Receive Date: 20040712
  Receipt Date: 20040629
  Transmission Date: 20050211
  Serious: Yes (Hospitalization)
  Sender: FDA-Public Use
  Company Number: US-JNJFOC-20040608604

PATIENT
  Age: 51 Year
  Sex: Female

DRUGS (9)
  1. DURAGESIC [Suspect]
     Indication: PAIN
     Dosage: 50 UG/HR, 1 IN 72 HOUR, TRANSDERMAL
     Route: 062
     Dates: start: 20030101
  2. CELEBREX (TABLETS) CELECOXIB [Concomitant]
  3. VALIUM [Concomitant]
  4. DOXIPINE (TABLETS) DOXEPIN [Concomitant]
  5. NEURONTIN [Concomitant]
  6. FLEXERIL (CYCLOBENZAPRINE HYDROCHLORIDE) TABLETS [Concomitant]
  7. ULTRACET [Concomitant]
  8. ACIPHEX (RABEPRAZOLE SODIUM) TABLETS [Concomitant]
  9. LIPITOR [Concomitant]

REACTIONS (6)
  - APPLICATION SITE ERYTHEMA [None]
  - APPLICATION SITE PAPULES [None]
  - APPLICATION SITE PRURITUS [None]
  - CHEST PAIN [None]
  - NASOPHARYNGITIS [None]
  - SPINAL DISORDER [None]
